FAERS Safety Report 13966193 (Version 7)
Quarter: 2019Q3

REPORT INFORMATION
  Report Type: Report from Study
  Country: US (occurrence: US)
  Receive Date: 20170913
  Receipt Date: 20190812
  Transmission Date: 20191004
  Serious: Yes (Hospitalization, Other)
  Sender: FDA-Public Use
  Company Number: PHHY2017US134454

PATIENT
  Age: 75 Year
  Sex: Female

DRUGS (5)
  1. JAKAFI [Suspect]
     Active Substance: RUXOLITINIB
     Indication: POLYCYTHAEMIA VERA
     Dosage: 10 MG, QD
     Route: 048
     Dates: start: 20160511
  2. GLEEVEC [Suspect]
     Active Substance: IMATINIB MESYLATE
     Indication: MYELOFIBROSIS
     Dosage: 400 MG, QD
     Route: 065
     Dates: start: 20170208, end: 20170217
  3. VIDAZA [Concomitant]
     Active Substance: AZACITIDINE
     Indication: MYELOFIBROSIS
     Dosage: 124 MG, 5 DAYS EACH CYCLE
     Route: 058
     Dates: start: 20161024, end: 20170616
  4. SPRYCEL [Concomitant]
     Active Substance: DASATINIB
     Indication: MYELOFIBROSIS
     Dosage: 100 MG, QD
     Route: 048
     Dates: start: 20170301, end: 20170322
  5. VIDAZA [Concomitant]
     Active Substance: AZACITIDINE
     Indication: POLYCYTHAEMIA VERA

REACTIONS (7)
  - Pyrexia [Recovered/Resolved]
  - Abdominal pain [Recovered/Resolved]
  - Myelofibrosis [Not Recovered/Not Resolved]
  - Vomiting [Recovered/Resolved]
  - Dyspnoea exertional [Recovered/Resolved]
  - Nausea [Recovered/Resolved]
  - Fatigue [Recovered/Resolved]

NARRATIVE: CASE EVENT DATE: 20170213
